FAERS Safety Report 7603050-7 (Version None)
Quarter: 2011Q3

REPORT INFORMATION
  Report Type: 
  Country: None (occurrence: None)
  Receive Date: 20110712
  Receipt Date: 20110712
  Transmission Date: 20111222
  Serious: Yes (Hospitalization)
  Sender: FDA-Public Use
  Company Number: None

PATIENT
  Age: 23 Year
  Sex: Female
  Weight: 65 kg

DRUGS (2)
  1. CEFTRIAXONE [Concomitant]
     Dosage: VANCO 1GM
     Route: 042
     Dates: start: 20110615, end: 20110620
  2. VANCOMYCIN [Suspect]
     Indication: CELLULITIS
     Dosage: VANCO 1GM
     Route: 042
     Dates: start: 20110613, end: 20110615

REACTIONS (3)
  - TUBULOINTERSTITIAL NEPHRITIS [None]
  - DIALYSIS [None]
  - RENAL FAILURE ACUTE [None]
